FAERS Safety Report 5160196-3 (Version None)
Quarter: 2006Q4

REPORT INFORMATION
  Report Type: 
  Country: None (occurrence: None)
  Receive Date: 20061129
  Receipt Date: 20061002
  Transmission Date: 20070319
  Serious: Yes (Death, Other)
  Sender: FDA-Public Use
  Company Number: US-PURDUE-USA_2006_0025313

PATIENT
  Age: 58 Year
  Sex: Female
  Weight: 104 kg

DRUGS (19)
  1. OXYCONTIN [Suspect]
     Indication: DRUG USE FOR UNKNOWN INDICATION
     Dosage: UNK, UNK
  2. INSULIN [Concomitant]
     Indication: DRUG USE FOR UNKNOWN INDICATION
  3. LYRICA [Concomitant]
     Indication: DRUG USE FOR UNKNOWN INDICATION
  4. CARDIZEM [Suspect]
     Indication: DRUG USE FOR UNKNOWN INDICATION
  5. AMBIEN [Concomitant]
     Indication: DRUG USE FOR UNKNOWN INDICATION
  6. DOXEPIN HCL [Suspect]
     Indication: DRUG USE FOR UNKNOWN INDICATION
  7. CORTEF [Concomitant]
     Indication: DRUG USE FOR UNKNOWN INDICATION
  8. ALLOPURINOL [Concomitant]
     Indication: DRUG USE FOR UNKNOWN INDICATION
  9. SEROQUEL [Suspect]
     Indication: DRUG USE FOR UNKNOWN INDICATION
  10. PROTONIX [Concomitant]
     Indication: DRUG USE FOR UNKNOWN INDICATION
  11. COUMADIN [Concomitant]
     Indication: DRUG USE FOR UNKNOWN INDICATION
  12. LIPITOR [Concomitant]
     Indication: DRUG USE FOR UNKNOWN INDICATION
  13. DEPAKOTE [Concomitant]
     Indication: DYSKINESIA
     Dates: start: 20051121
  14. LEXAPRO [Suspect]
     Indication: DRUG USE FOR UNKNOWN INDICATION
  15. CLONIDINE [Concomitant]
     Indication: DRUG USE FOR UNKNOWN INDICATION
  16. LASIX [Concomitant]
     Indication: DRUG USE FOR UNKNOWN INDICATION
  17. DIOVAN [Concomitant]
     Indication: DRUG USE FOR UNKNOWN INDICATION
  18. LIDOCAINE [Suspect]
     Indication: DRUG USE FOR UNKNOWN INDICATION
  19. CAFFEINE [Suspect]
     Indication: DRUG USE FOR UNKNOWN INDICATION

REACTIONS (15)
  - ACCIDENTAL DEATH [None]
  - AKATHISIA [None]
  - BLOOD GASES ABNORMAL [None]
  - CARDIO-RESPIRATORY ARREST [None]
  - CONFUSIONAL STATE [None]
  - DEPRESSED LEVEL OF CONSCIOUSNESS [None]
  - DYSKINESIA [None]
  - HYPOGLYCAEMIA [None]
  - MULTIPLE DRUG OVERDOSE ACCIDENTAL [None]
  - MUSCLE TWITCHING [None]
  - RESPIRATORY DISTRESS [None]
  - SNORING [None]
  - SUICIDAL IDEATION [None]
  - TREMOR [None]
  - UNRESPONSIVE TO STIMULI [None]
